FAERS Safety Report 4677594-4 (Version None)
Quarter: 2005Q2

REPORT INFORMATION
  Report Type: 
  Country: None (occurrence: None)
  Receive Date: 20050525
  Receipt Date: 20050525
  Transmission Date: 20051028
  Serious: No
  Sender: FDA-Public Use
  Company Number: None

PATIENT
  Age: 55 Year
  Sex: Male
  Weight: 102.0593 kg

DRUGS (1)
  1. ANCEF [Suspect]
     Indication: INFECTION
     Dosage: ONE GM IV
     Route: 042
     Dates: start: 20050509

REACTIONS (4)
  - FLUSHING [None]
  - INFUSION RELATED REACTION [None]
  - PRURITUS [None]
  - URTICARIA [None]
